FAERS Safety Report 9934837 (Version 1)
Quarter: 2014Q1

REPORT INFORMATION
  Report Type: Spontaneous
  Country: US (occurrence: US)
  Receive Date: 20140228
  Receipt Date: 20140228
  Transmission Date: 20141002
  Serious: No
  Sender: FDA-Public Use
  Company Number: US-ASTRAZENECA-2013SE58611

PATIENT
  Age: 56 Year
  Sex: Male
  Weight: 156 kg

DRUGS (1)
  1. TOPROL XL [Suspect]
     Indication: HYPERTENSION
     Route: 048

REACTIONS (4)
  - Mental impairment [Unknown]
  - Drug dose omission [Unknown]
  - Intentional drug misuse [Unknown]
  - Intentional drug misuse [Unknown]
